FAERS Safety Report 10179537 (Version 1)
Quarter: 2014Q2

REPORT INFORMATION
  Report Type: Spontaneous
  Country: GB (occurrence: GB)
  Receive Date: 20140519
  Receipt Date: 20140519
  Transmission Date: 20141212
  Serious: Yes (Life-Threatening, Hospitalization, Other)
  Sender: FDA-Public Use
  Company Number: GB-BAXTER-2014BAX023936

PATIENT
  Age: 41 Year
  Sex: Male

DRUGS (10)
  1. CYCLOPHOSPHAMIDE INJECTION 1G [Suspect]
     Indication: BURKITT^S LYMPHOMA
     Route: 065
     Dates: start: 20130610
  2. DOXORUBICIN [Suspect]
     Indication: BURKITT^S LYMPHOMA
     Route: 065
     Dates: start: 20130610
  3. METHOTREXATE [Suspect]
     Indication: BURKITT^S LYMPHOMA
     Route: 065
     Dates: start: 201306
  4. RITUXIMAB [Suspect]
     Indication: BURKITT^S LYMPHOMA
     Route: 048
     Dates: start: 20130618
  5. VINCRISTINE [Suspect]
     Indication: BURKITT^S LYMPHOMA
     Route: 065
     Dates: start: 20130610
  6. ZAPONEX [Suspect]
     Indication: PRODUCT USED FOR UNKNOWN INDICATION
     Route: 048
     Dates: start: 20100618, end: 20130729
  7. FILGRASTIM [Concomitant]
     Indication: PRODUCT USED FOR UNKNOWN INDICATION
     Route: 065
     Dates: start: 20130623
  8. GRANISETRON HYDROCHLORIDE [Concomitant]
     Indication: BURKITT^S LYMPHOMA
     Route: 065
     Dates: start: 20130611
  9. SODIUM BICARBONATE [Concomitant]
     Indication: BURKITT^S LYMPHOMA
     Route: 065
     Dates: start: 20130618
  10. DENZAPINE [Concomitant]
     Indication: PRODUCT USED FOR UNKNOWN INDICATION
     Route: 065
     Dates: start: 20070527, end: 20100619

REACTIONS (13)
  - Neutrophil count decreased [Recovered/Resolved]
  - Leukopenia [Recovered/Resolved]
  - Thrombocytopenia [Recovered/Resolved]
  - Neutrophil count increased [Recovered/Resolved]
  - Leukopenia [Recovered/Resolved]
  - Neutrophil count decreased [Recovered/Resolved]
  - Thrombocytopenia [Recovered/Resolved]
  - Leukopenia [Recovered/Resolved]
  - Neutrophil count decreased [Recovered/Resolved]
  - Thrombocytopenia [Recovered/Resolved]
  - Neutrophil count increased [Recovered/Resolved]
  - Neutrophil count decreased [Recovered/Resolved]
  - Leukopenia [Recovered/Resolved]
